FAERS Safety Report 5167481-X (Version None)
Quarter: 2006Q4

REPORT INFORMATION
  Report Type: 
  Country: None (occurrence: None)
  Receive Date: 20061130
  Receipt Date: 20061122
  Transmission Date: 20070319
  Serious: Yes (Other)
  Sender: FDA-Public Use
  Company Number: 2006SP002954

PATIENT
  Age: 57 Year
  Sex: Male
  Weight: 69.4003 kg

DRUGS (4)
  1. PEGETRON (PEGINTERFERON ALFA-2B W/RIBAVIRIN) (PEGYLATED INTERFERON ALF [Suspect]
     Indication: HEPATITIS C
     Dosage: 100 MG; QW; SC
     Route: 058
     Dates: start: 20060101
  2. PEGETRON (PEGINTERFERON ALFA-2B W/RIBAVIRIN) (PEGYLATED INTERFERON ALF [Suspect]
     Indication: HEPATITIS C
     Dosage: 100 MG; QW; SC
     Route: 058
     Dates: start: 20060105
  3. EFFEXOR (CON.) [Concomitant]
  4. ATIVAN (CON.) [Concomitant]

REACTIONS (3)
  - CONDITION AGGRAVATED [None]
  - RETINAL DETACHMENT [None]
  - VISION BLURRED [None]
